FAERS Safety Report 8444915-6 (Version None)
Quarter: 2012Q2

REPORT INFORMATION
  Report Type: 
  Country: None (occurrence: None)
  Receive Date: 20120612
  Receipt Date: 20120612
  Transmission Date: 20120825
  Serious: No
  Sender: FDA-Public Use
  Company Number: None

PATIENT
  Age: 43 Year
  Sex: Male
  Weight: 83.9154 kg

DRUGS (1)
  1. RELAFEN [Suspect]
     Indication: TENDONITIS
     Dosage: 500 MG, BID, PO
     Route: 048
     Dates: start: 20120301, end: 20120401

REACTIONS (1)
  - PRURITUS [None]
